FAERS Safety Report 25625957 (Version 1)
Quarter: 2025Q3

REPORT INFORMATION
  Report Type: Report from Study
  Country: EU (occurrence: EU)
  Receive Date: 20250731
  Receipt Date: 20250731
  Transmission Date: 20251021
  Serious: Yes (Death, Hospitalization)
  Sender: MERCK SHARP & DOHME LLC
  Company Number: EU-009507513-2227036

PATIENT
  Age: 78 Year
  Sex: Female

DRUGS (28)
  1. WINREVAIR [Suspect]
     Active Substance: SOTATERCEPT-CSRK
     Indication: Pulmonary arterial hypertension
     Dates: start: 20241213
  2. WINREVAIR [Suspect]
     Active Substance: SOTATERCEPT-CSRK
  3. WINREVAIR [Suspect]
     Active Substance: SOTATERCEPT-CSRK
  4. WINREVAIR [Suspect]
     Active Substance: SOTATERCEPT-CSRK
  5. WINREVAIR [Suspect]
     Active Substance: SOTATERCEPT-CSRK
     Indication: Pulmonary arterial hypertension
     Dates: start: 20250307
  6. WINREVAIR [Suspect]
     Active Substance: SOTATERCEPT-CSRK
  7. WINREVAIR [Suspect]
     Active Substance: SOTATERCEPT-CSRK
  8. WINREVAIR [Suspect]
     Active Substance: SOTATERCEPT-CSRK
  9. WINREVAIR [Suspect]
     Active Substance: SOTATERCEPT-CSRK
  10. WINREVAIR [Suspect]
     Active Substance: SOTATERCEPT-CSRK
  11. WINREVAIR [Suspect]
     Active Substance: SOTATERCEPT-CSRK
  12. WINREVAIR [Suspect]
     Active Substance: SOTATERCEPT-CSRK
  13. SELEXIPAG [Concomitant]
     Active Substance: SELEXIPAG
  14. TADALAFIL [Concomitant]
     Active Substance: TADALAFIL
  15. PANTOPRAZOLE [Concomitant]
     Active Substance: PANTOPRAZOLE
  16. BISOPROLOL [Concomitant]
     Active Substance: BISOPROLOL
  17. TORSEMIDE [Concomitant]
     Active Substance: TORSEMIDE
  18. LOPERAMIDE [Concomitant]
     Active Substance: LOPERAMIDE
  19. EMPAGLIFLOZIN [Concomitant]
     Active Substance: EMPAGLIFLOZIN
  20. RIVAROXABAN [Concomitant]
     Active Substance: RIVAROXABAN
  21. NINTEDANIB [Concomitant]
     Active Substance: NINTEDANIB
  22. MYCOPHENOLIC ACID [Concomitant]
     Active Substance: MYCOPHENOLIC ACID
  23. PRAMIPEXOLE [Concomitant]
     Active Substance: PRAMIPEXOLE
  24. CHOLECALCIFEROL [Concomitant]
     Active Substance: CHOLECALCIFEROL
  25. EPLERENONE [Concomitant]
     Active Substance: EPLERENONE
  26. Kalium (Potassium) [Concomitant]
  27. LTOT (Long-Term Oxygen Therapy) [Concomitant]
  28. Iron II [Concomitant]

REACTIONS (7)
  - Death [Fatal]
  - Urosepsis [Not Recovered/Not Resolved]
  - Nausea [Recovered/Resolved]
  - Vomiting [Recovered/Resolved]
  - General physical health deterioration [Unknown]
  - Haematochezia [Unknown]
  - Asthenia [Recovering/Resolving]

NARRATIVE: CASE EVENT DATE: 20240101
